FAERS Safety Report 8443510-2 (Version None)
Quarter: 2012Q2

REPORT INFORMATION
  Report Type: 
  Country: None (occurrence: None)
  Receive Date: 20120618
  Receipt Date: 20120611
  Transmission Date: 20120825
  Serious: Yes (Life-Threatening, Hospitalization)
  Sender: FDA-Public Use
  Company Number: FR-VERTEX PHARMACEUTICALS INC.-000000000000000761

PATIENT
  Sex: Male
  Weight: 140 kg

DRUGS (8)
  1. PEGASYS [Concomitant]
     Route: 058
  2. COPEGUS [Concomitant]
     Indication: HEPATITIS C
     Dates: start: 20120110
  3. ATARAX [Concomitant]
     Indication: DEPRESSION
     Dates: start: 20110101
  4. PRAZOSIN HCL [Concomitant]
     Indication: HYPERTENSION
     Dates: start: 20110101
  5. PEGASYS [Concomitant]
     Indication: HEPATITIS C
     Route: 058
  6. STILNOX [Concomitant]
     Indication: DEPRESSION
     Dates: start: 20110101
  7. INCIVO [Suspect]
     Indication: HEPATITIS C
     Dosage: DOSAGE FORM: TABLET
     Route: 048
     Dates: start: 20120110, end: 20120405
  8. CYMBALTA [Concomitant]
     Indication: DEPRESSION
     Dates: start: 20110101

REACTIONS (5)
  - SEPSIS [None]
  - ERYSIPELAS [None]
  - STREPTOCOCCAL SEPSIS [None]
  - CONFUSIONAL STATE [None]
  - SEPTIC SHOCK [None]
